FAERS Safety Report 21379550 (Version 4)
Quarter: 2023Q1

REPORT INFORMATION
  Report Type: Report from Study
  Country: US (occurrence: US)
  Receive Date: 20220927
  Receipt Date: 20230302
  Transmission Date: 20230417
  Serious: Yes (Other)
  Sender: FDA-Public Use
  Company Number: US-ABBVIE-4130365

PATIENT
  Sex: Female

DRUGS (2)
  1. HUMIRA [Suspect]
     Active Substance: ADALIMUMAB
     Indication: Crohn^s disease
     Dosage: CITRATE FREE
     Route: 058
  2. HUMIRA [Suspect]
     Active Substance: ADALIMUMAB
     Route: 058

REACTIONS (15)
  - Spinal operation [Recovering/Resolving]
  - Spondylolisthesis [Recovering/Resolving]
  - Pain in extremity [Recovering/Resolving]
  - Medical device implantation [Unknown]
  - Nerve compression [Recovering/Resolving]
  - Medical device removal [Unknown]
  - Weight decreased [Unknown]
  - Complication associated with device [Unknown]
  - Pain [Unknown]
  - Nerve compression [Recovering/Resolving]
  - Fatigue [Recovering/Resolving]
  - Loss of personal independence in daily activities [Unknown]
  - Sciatica [Recovering/Resolving]
  - Diarrhoea [Recovered/Resolved]
  - Nausea [Recovering/Resolving]
